FAERS Safety Report 5668635-6 (Version None)
Quarter: 2008Q1

REPORT INFORMATION
  Report Type: 
  Country: None (occurrence: None)
  Receive Date: 20080315
  Receipt Date: 20080226
  Transmission Date: 20080703
  Serious: No
  Sender: FDA-Public Use
  Company Number: US-ABBOTT-08P-163-0440555-00

PATIENT
  Age: 32 Year
  Sex: Male

DRUGS (1)
  1. HUMIRA [Suspect]
     Indication: CROHN'S DISEASE
     Route: 058
     Dates: start: 20070901

REACTIONS (5)
  - FLUID RETENTION [None]
  - INJECTION SITE OEDEMA [None]
  - INJECTION SITE REACTION [None]
  - OEDEMA PERIPHERAL [None]
  - SKIN DISORDER [None]
